FAERS Safety Report 4907938-7 (Version None)
Quarter: 2006Q1

REPORT INFORMATION
  Report Type: 
  Country: None (occurrence: None)
  Receive Date: 20060208
  Receipt Date: 20060124
  Transmission Date: 20060701
  Serious: Yes (Hospitalization)
  Sender: FDA-Public Use
  Company Number: 2006-US-00586

PATIENT
  Age: 22 Year
  Sex: Female

DRUGS (4)
  1. PROMPT PHENYTOIN SODIUM [Suspect]
     Indication: EPILEPSY
     Dosage: INTRAVENOUS
     Route: 042
  2. QUININE [Suspect]
     Indication: MALARIA
     Dosage: INTRAVENOUS
     Route: 042
  3. VALPROATE SODIUM [Concomitant]
  4. TOPIRAMATE [Concomitant]

REACTIONS (9)
  - CONVULSION [None]
  - DEPRESSED LEVEL OF CONSCIOUSNESS [None]
  - GENE MUTATION [None]
  - IRRITABILITY [None]
  - PLASMODIUM FALCIPARUM INFECTION [None]
  - PYREXIA [None]
  - STATUS EPILEPTICUS [None]
  - TACHYCARDIA [None]
  - TACHYPNOEA [None]
